FAERS Safety Report 10243980 (Version 1)
Quarter: 2014Q2

REPORT INFORMATION
  Report Type: Spontaneous
  Country: US (occurrence: US)
  Receive Date: 20140618
  Receipt Date: 20140618
  Transmission Date: 20141212
  Serious: Yes (Hospitalization)
  Sender: FDA-Public Use
  Company Number: US-ASTRAZENECA-2014SE40804

PATIENT
  Age: 74 Year
  Sex: Female
  Weight: 90 kg

DRUGS (17)
  1. LISINOPRIL [Suspect]
     Route: 048
  2. SYMBICORT [Suspect]
     Dosage: 160/4.5 2, 2 PUFFS BID
     Route: 055
     Dates: start: 20140528, end: 20140529
  3. SYMBICORT [Suspect]
     Dosage: 160/4.5 , ONE PUFF MORNING
     Route: 055
     Dates: start: 20140530, end: 20140530
  4. ADVAIR [Concomitant]
     Indication: EMPHYSEMA
     Dosage: 250/50, 1 PUFF BID
     Route: 055
     Dates: start: 2004
  5. SPIRIVA [Concomitant]
     Indication: EMPHYSEMA
     Route: 055
     Dates: start: 2004
  6. ALPRAZOLAM [Concomitant]
     Indication: ANXIETY
     Route: 048
     Dates: start: 2004
  7. ALPRAZOLAM [Concomitant]
     Indication: DEPRESSION
     Route: 048
     Dates: start: 2004
  8. CLOPIDOGREL [Concomitant]
     Indication: ANTICOAGULANT THERAPY
     Route: 048
     Dates: start: 20140529
  9. ALEVE [Concomitant]
     Indication: ARTHRITIS
     Route: 048
  10. ALEVE [Concomitant]
     Indication: ARTHRITIS
     Dosage: SOMETIMES USES A THIRD TABLET OF ALEVE
     Route: 048
  11. MIRTACAPINE [Concomitant]
     Indication: DEPRESSION
  12. MIRTACAPINE [Concomitant]
     Indication: DEPRESSION
  13. ALBUTEROL [Concomitant]
     Dosage: PRN
  14. OXYBUTYNIN [Concomitant]
     Indication: BLADDER DISORDER
     Route: 048
  15. SIMVASTATIN [Concomitant]
     Route: 048
  16. MULTIVITIAMIN PLUS IRON [Concomitant]
     Dosage: DAILY
  17. CALTRATE PLUS D [Concomitant]
     Indication: NUTRITIONAL SUPPLEMENTATION

REACTIONS (12)
  - Dizziness [Unknown]
  - Cerebrovascular accident [Recovered/Resolved with Sequelae]
  - Constipation [Recovered/Resolved]
  - Emphysema [Unknown]
  - Anxiety [Unknown]
  - Blood glucose abnormal [Recovered/Resolved]
  - Mental disorder [Unknown]
  - Depression [Unknown]
  - Asthenia [Not Recovered/Not Resolved]
  - Arthritis [Not Recovered/Not Resolved]
  - Memory impairment [Unknown]
  - Feeling abnormal [Unknown]
